FAERS Safety Report 15923405 (Version 3)
Quarter: 2019Q3

REPORT INFORMATION
  Report Type: Spontaneous
  Country: US (occurrence: US)
  Receive Date: 20190206
  Receipt Date: 20190816
  Transmission Date: 20191004
  Serious: Yes (Death, Other)
  Sender: FDA-Public Use
  Company Number: US-ASTRAZENECA-2019SE21270

PATIENT

DRUGS (7)
  1. CLONIDINE. [Concomitant]
     Active Substance: CLONIDINE
  2. DIGOXIN. [Concomitant]
     Active Substance: DIGOXIN
  3. NEXIUM [Suspect]
     Active Substance: ESOMEPRAZOLE MAGNESIUM
     Route: 048
  4. AMLODIPINE [Concomitant]
     Active Substance: AMLODIPINE BESYLATE
  5. LISINOPRIL. [Concomitant]
     Active Substance: LISINOPRIL
  6. ATENOLOL. [Concomitant]
     Active Substance: ATENOLOL
  7. NEXIUM [Suspect]
     Active Substance: ESOMEPRAZOLE MAGNESIUM
     Route: 048
     Dates: start: 20120502

REACTIONS (5)
  - Renal injury [Unknown]
  - Death [Fatal]
  - Rebound acid hypersecretion [Unknown]
  - Renal failure [Unknown]
  - Chronic kidney disease [Unknown]
